FAERS Safety Report 12436107 (Version 2)
Quarter: 2016Q3

REPORT INFORMATION
  Report Type: Report from Study
  Country: US (occurrence: US)
  Receive Date: 20160604
  Receipt Date: 20160816
  Transmission Date: 20161109
  Serious: Yes (Other)
  Sender: FDA-Public Use
  Company Number: US-AMGEN-USASL2016068792

PATIENT
  Age: 75 Year
  Sex: Female

DRUGS (2)
  1. ENBREL [Suspect]
     Active Substance: ETANERCEPT
     Indication: RHEUMATOID ARTHRITIS
     Dosage: UNK UNK, QWK
     Route: 065
     Dates: start: 20160520
  2. CELEBREX [Concomitant]
     Active Substance: CELECOXIB
     Dosage: UNK

REACTIONS (19)
  - Back disorder [Not Recovered/Not Resolved]
  - Joint injury [Unknown]
  - Contusion [Recovered/Resolved]
  - Spinal pain [Not Recovered/Not Resolved]
  - Fall [Unknown]
  - Mass [Unknown]
  - Rheumatoid arthritis [Not Recovered/Not Resolved]
  - Fibromyalgia [Recovering/Resolving]
  - Finger deformity [Unknown]
  - Arthralgia [Recovering/Resolving]
  - Pain in extremity [Unknown]
  - Myalgia [Unknown]
  - Limb injury [Unknown]
  - Musculoskeletal pain [Not Recovered/Not Resolved]
  - Neck pain [Unknown]
  - Mobility decreased [Unknown]
  - Headache [Unknown]
  - Groin pain [Unknown]
  - Infection [Unknown]

NARRATIVE: CASE EVENT DATE: 2016
